FAERS Safety Report 14566649 (Version 4)
Quarter: 2018Q1

REPORT INFORMATION
  Report Type: Report from Study
  Country: None (occurrence: CH)
  Receive Date: 20180223
  Receipt Date: 20180309
  Transmission Date: 20180509
  Serious: Yes (Death, Hospitalization, Other)
  Sender: FDA-Public Use
  Company Number: CH-ABBVIE-18K-151-2213458-00

PATIENT
  Age: 88 Year
  Sex: Male

DRUGS (3)
  1. DUODOPA [Suspect]
     Active Substance: CARBIDOPA\LEVODOPA
     Dosage: MORNING DOSE 3.5ML?CONTINUOUS RATE 2.3ML/H?EXTRA DOSE 1.2ML
     Route: 050
     Dates: start: 20180221
  2. DUODOPA [Suspect]
     Active Substance: CARBIDOPA\LEVODOPA
     Indication: PARKINSON^S DISEASE
     Dosage: MORNING DOSE 3.5ML??CONTINUOUS RATE 2.3L/H??EXTRA DOSE 1.2ML
     Route: 050
     Dates: start: 20160226
  3. DUODOPA [Suspect]
     Active Substance: CARBIDOPA\LEVODOPA
     Dosage: MORNING DOSE 3.5ML?CONTINUOUS RATE 2.4L/H?EXTRA DOSE 1.2ML
     Route: 050
     Dates: end: 20180221

REACTIONS (14)
  - Stoma site pain [Unknown]
  - Device connection issue [Recovered/Resolved]
  - Cardiac disorder [Fatal]
  - Inflammation [Unknown]
  - Device-device incompatibility [Unknown]
  - Device occlusion [Recovered/Resolved]
  - Abdominal pain [Unknown]
  - Stoma site erythema [Unknown]
  - Device dislocation [Recovered/Resolved]
  - Gait disturbance [Unknown]
  - Stoma site discharge [Recovered/Resolved]
  - Abdominal pain lower [Unknown]
  - Complication associated with device [Unknown]
  - Stoma site discharge [Unknown]

NARRATIVE: CASE EVENT DATE: 20180219
